FAERS Safety Report 9246980 (Version 1)
Quarter: 2013Q2

REPORT INFORMATION
  Report Type: Spontaneous
  Country: US (occurrence: US)
  Receive Date: 20130422
  Receipt Date: 20130422
  Transmission Date: 20140414
  Serious: No
  Sender: FDA-Public Use
  Company Number: US-009507513-1304USA009307

PATIENT
  Sex: Female
  Weight: 71.66 kg

DRUGS (1)
  1. NEXPLANON [Suspect]
     Indication: CONTRACEPTION
     Dosage: EVERY 3 YEARS, 1 IMPLANT
     Route: 059
     Dates: start: 20120625

REACTIONS (3)
  - Chest pain [Unknown]
  - Nausea [Unknown]
  - Hypertension [Unknown]
